FAERS Safety Report 18756994 (Version 1)
Quarter: 2021Q1

REPORT INFORMATION
  Report Type: Spontaneous
  Country: US (occurrence: US)
  Receive Date: 20210119
  Receipt Date: 20210119
  Transmission Date: 20210419
  Serious: Yes (Hospitalization, Other)
  Sender: FDA-Public Use
  Company Number: US-SUN PHARMACEUTICAL INDUSTRIES LTD-2021R1-276055

PATIENT
  Age: 46 Year
  Sex: Male
  Weight: 84 kg

DRUGS (2)
  1. ACETAMINOPHEN. [Suspect]
     Active Substance: ACETAMINOPHEN
     Indication: PRODUCT USED FOR UNKNOWN INDICATION
     Dosage: TWO HUNDRED FIFTY 500?MG PILLS
     Route: 065
  2. DEXTROMETHORPHAN [Suspect]
     Active Substance: DEXTROMETHORPHAN
     Indication: PRODUCT USED FOR UNKNOWN INDICATION
     Dosage: UNK
     Route: 065

REACTIONS (11)
  - Overdose [Unknown]
  - Polyuria [Recovered/Resolved]
  - Drug level increased [Recovered/Resolved]
  - Glycosuria [Recovered/Resolved]
  - Alanine aminotransferase increased [Recovered/Resolved]
  - Lactic acidosis [Recovered/Resolved]
  - Depressed level of consciousness [Recovered/Resolved]
  - Hypotension [Recovered/Resolved]
  - Albuminuria [Recovered/Resolved]
  - Coagulopathy [Recovered/Resolved]
  - Hyperglycaemia [Recovered/Resolved]
